FAERS Safety Report 7374842-7 (Version None)
Quarter: 2011Q1

REPORT INFORMATION
  Report Type: 
  Country: None (occurrence: None)
  Receive Date: 20110325
  Receipt Date: 20110321
  Transmission Date: 20110831
  Serious: Yes (Life-Threatening, Hospitalization)
  Sender: FDA-Public Use
  Company Number: FR-JNJFOC-20110307376

PATIENT
  Age: 84 Year
  Sex: Female

DRUGS (2)
  1. INDAPAMIDE [Concomitant]
     Route: 065
  2. RISPERDAL [Suspect]
     Indication: AGITATION
     Route: 048

REACTIONS (6)
  - MALAISE [None]
  - HYPOTENSION [None]
  - HYPOTHERMIA [None]
  - PALLOR [None]
  - OVERDOSE [None]
  - SOMNOLENCE [None]
